FAERS Safety Report 6270300-1 (Version None)
Quarter: 2009Q3

REPORT INFORMATION
  Report Type: 
  Country: None (occurrence: None)
  Receive Date: 20090716
  Receipt Date: 20090715
  Transmission Date: 20100115
  Serious: Yes (Hospitalization)
  Sender: FDA-Public Use
  Company Number: A0797037A

PATIENT
  Age: 45 Year
  Sex: Female

DRUGS (2)
  1. ALLI [Suspect]
     Route: 048
  2. OXYCONTIN [Concomitant]
     Indication: BACK PAIN

REACTIONS (7)
  - ABDOMINAL PAIN UPPER [None]
  - CONDITION AGGRAVATED [None]
  - DIARRHOEA [None]
  - FOOD POISONING [None]
  - FREQUENT BOWEL MOVEMENTS [None]
  - NAUSEA [None]
  - ULCER [None]
